FAERS Safety Report 25009234 (Version 1)
Quarter: 2025Q1

REPORT INFORMATION
  Report Type: Spontaneous
  Country: US (occurrence: US)
  Receive Date: 20250225
  Receipt Date: 20250225
  Transmission Date: 20250408
  Serious: No
  Sender: PFIZER
  Company Number: US-PFIZER INC-PV202300142421

PATIENT
  Age: 82 Year
  Sex: Female
  Weight: 84.37 kg

DRUGS (1)
  1. IBRANCE [Suspect]
     Active Substance: PALBOCICLIB
     Indication: Bone cancer
     Route: 048
     Dates: start: 202307

REACTIONS (7)
  - Mobility decreased [Unknown]
  - Dysgraphia [Unknown]
  - Body height decreased [Unknown]
  - Illness [Unknown]
  - Malaise [Unknown]
  - Asthenia [Recovering/Resolving]
  - Eating disorder [Unknown]

NARRATIVE: CASE EVENT DATE: 20250217
